FAERS Safety Report 7360871-6 (Version None)
Quarter: 2011Q1

REPORT INFORMATION
  Report Type: 
  Country: None (occurrence: None)
  Receive Date: 20110315
  Receipt Date: 20110315
  Transmission Date: 20110831
  Serious: Yes (Other)
  Sender: FDA-Public Use
  Company Number: None

PATIENT
  Age: 50 Year
  Sex: Female
  Weight: 71.6683 kg

DRUGS (1)
  1. SIMVASTATIN [Suspect]
     Indication: BLOOD CHOLESTEROL INCREASED
     Dosage: 20 MG DAILY PO
     Route: 048
     Dates: start: 20101106, end: 20101222

REACTIONS (19)
  - DIZZINESS [None]
  - PAIN [None]
  - NEURALGIA [None]
  - HEADACHE [None]
  - MYALGIA [None]
  - HEART RATE INCREASED [None]
  - COGNITIVE DISORDER [None]
  - MEMORY IMPAIRMENT [None]
  - ARTHRALGIA [None]
  - PARAESTHESIA [None]
  - HYPERHIDROSIS [None]
  - FATIGUE [None]
  - HYPOAESTHESIA [None]
  - ACTIVITIES OF DAILY LIVING IMPAIRED [None]
  - BALANCE DISORDER [None]
  - IMPAIRED DRIVING ABILITY [None]
  - NECK PAIN [None]
  - DEPRESSION [None]
  - BLOOD PRESSURE INCREASED [None]
